FAERS Safety Report 6946559-1 (Version None)
Quarter: 2010Q3

REPORT INFORMATION
  Report Type: 
  Country: None (occurrence: None)
  Receive Date: 20100827
  Receipt Date: 20090808
  Transmission Date: 20110219
  Serious: No
  Sender: FDA-Public Use
  Company Number: US-ABBOTT-09P-163-0590158-00

PATIENT
  Sex: Female

DRUGS (3)
  1. NIASPAN [Suspect]
     Indication: BLOOD TRIGLYCERIDES INCREASED
     Route: 048
     Dates: start: 20090806, end: 20090807
  2. NIASPAN [Suspect]
     Indication: LDL/HDL RATIO INCREASED
  3. IBUPROFEN [Concomitant]
     Indication: PRODUCT USED FOR UNKNOWN INDICATION

REACTIONS (5)
  - FLUSHING [None]
  - OEDEMA PERIPHERAL [None]
  - PARAESTHESIA [None]
  - SENSATION OF HEAVINESS [None]
  - SKIN BURNING SENSATION [None]
